FAERS Safety Report 10576331 (Version 2)
Quarter: 2014Q4

REPORT INFORMATION
  Report Type: Spontaneous
  Country: JP (occurrence: None)
  Receive Date: 20141107
  Receipt Date: 20141114
  Transmission Date: 20150529
  Serious: Yes (Other)
  Sender: FDA-Public Use
  Company Number: JP2014JPN011840

PATIENT
  Age: 39 Year
  Sex: Male

DRUGS (7)
  1. NORVIR [Concomitant]
     Active Substance: RITONAVIR
  2. TIVICAY [Suspect]
     Active Substance: DOLUTEGRAVIR SODIUM
     Indication: HIV INFECTION
     Route: 048
     Dates: start: 20140430
  3. EPIVIR [Suspect]
     Active Substance: LAMIVUDINE
     Indication: HIV INFECTION
     Dosage: 1 DF, QD, ORAL
     Route: 048
     Dates: start: 20140430
  4. PREZISTA [Concomitant]
     Active Substance: DARUNAVIR ETHANOLATE
  5. EPZICOM [Suspect]
     Active Substance: ABACAVIR SULFATE\LAMIVUDINE
     Indication: HIV INFECTION
     Dosage: 1 DF, QD, ORAL
     Route: 048
     Dates: start: 20140430
  6. DEPAKENE [Suspect]
     Active Substance: VALPROIC ACID
     Indication: SCHIZOPHRENIA
     Route: 048
     Dates: start: 201404
  7. CONTOMIN [Suspect]
     Active Substance: CHLORPROMAZINE
     Indication: SCHIZOPHRENIA
     Dosage: 50 UNK, UNK, INTRAMUSCULAR
     Route: 030

REACTIONS (5)
  - Gait disturbance [None]
  - Nausea [None]
  - Blood HIV RNA increased [None]
  - Dizziness [None]
  - Treatment noncompliance [None]

NARRATIVE: CASE EVENT DATE: 20140521
